FAERS Safety Report 19422131 (Version 1)
Quarter: 2021Q2

REPORT INFORMATION
  Report Type: Spontaneous
  Country: US (occurrence: US)
  Receive Date: 20210616
  Receipt Date: 20210616
  Transmission Date: 20210717
  Serious: No
  Sender: FDA-Public Use
  Company Number: None

PATIENT
  Age: 54 Year
  Sex: Female
  Weight: 90 kg

DRUGS (1)
  1. CHLORAPREP SINGLE SWABSTICK [Suspect]
     Active Substance: CHLORHEXIDINE GLUCONATE\ISOPROPYL ALCOHOL
     Indication: ANTIBIOTIC PROPHYLAXIS
     Dosage: ?          QUANTITY:1.75 SWAB;?
     Route: 061
     Dates: start: 20210615, end: 20210615

REACTIONS (2)
  - Hypersensitivity [None]
  - Product label issue [None]

NARRATIVE: CASE EVENT DATE: 20210615
